FAERS Safety Report 8522338-9 (Version None)
Quarter: 2012Q3

REPORT INFORMATION
  Report Type: 
  Country: None (occurrence: None)
  Receive Date: 20120719
  Receipt Date: 20120705
  Transmission Date: 20120928
  Serious: Yes (Other)
  Sender: FDA-Public Use
  Company Number: CHPA2012US015064

PATIENT
  Age: 72 Year
  Sex: Female
  Weight: 58.05 kg

DRUGS (1)
  1. BENEFIBER W/ WHEAT DEXTRIN [Suspect]
     Indication: CONSTIPATION
     Dosage: 2 TSP, TID
     Route: 048
     Dates: start: 20110101, end: 20120501

REACTIONS (4)
  - COELIAC DISEASE [None]
  - WAIST CIRCUMFERENCE INCREASED [None]
  - OFF LABEL USE [None]
  - ABDOMINAL DISTENSION [None]
